FAERS Safety Report 12663451 (Version 1)
Quarter: 2016Q3

REPORT INFORMATION
  Report Type: Spontaneous
  Country: US (occurrence: None)
  Receive Date: 20160817
  Receipt Date: 20160817
  Transmission Date: 20161109
  Serious: No
  Sender: FDA-Public Use
  Company Number: None

PATIENT
  Age: 52 Year
  Sex: Male

DRUGS (1)
  1. LANTUS SOLOSTAR [Suspect]
     Active Substance: INSULIN GLARGINE
     Indication: DIABETES MELLITUS
     Route: 058
     Dates: start: 20160801, end: 20160814

REACTIONS (5)
  - Injection site inflammation [None]
  - Injection site nodule [None]
  - Product quality issue [None]
  - Product tampering [None]
  - Injection site reaction [None]

NARRATIVE: CASE EVENT DATE: 20160814
